FAERS Safety Report 22379100 (Version 1)
Quarter: 2023Q2

REPORT INFORMATION
  Report Type: Spontaneous
  Country: US (occurrence: US)
  Receive Date: 20230529
  Receipt Date: 20230529
  Transmission Date: 20230722
  Serious: No
  Sender: FDA-Public Use
  Company Number: US-GALDERMA-US2023007137

PATIENT

DRUGS (5)
  1. PROACTIV MD ADAPALENE ACNE TREATMENT [Suspect]
     Active Substance: ADAPALENE
     Indication: Acne
     Dosage: 1 DOSAGE FORM, QD, APPLIED ON FACE, BACK, CHEST
     Route: 061
     Dates: start: 2020
  2. COSMETICS [Concomitant]
     Active Substance: COSMETICS
     Indication: Acne
     Dosage: 1 DOSAGE FORM, QD, APPLIED ON FACE, BACK, CHEST
     Route: 061
     Dates: start: 2020
  3. COSMETICS [Concomitant]
     Active Substance: COSMETICS
     Indication: Acne
     Dosage: 1 DOSAGE FORM, QD, APPLIED ON FACE, BACK, CHEST
     Route: 061
     Dates: start: 2020
  4. Proactiv Redness Relief Serum [Concomitant]
     Indication: Acne
     Dosage: 1 DOSAGE FORM, QD, APPLIED ON FACE, BACK, CHEST
     Route: 061
     Dates: start: 2020
  5. PROACTIV DEEP CLEANSING BODY WASH [Concomitant]
     Active Substance: SALICYLIC ACID
     Indication: Acne
     Dosage: 1 DOSAGE FORM, QD, APPLIED ON FACE, BACK, CHEST
     Route: 061
     Dates: start: 2020

REACTIONS (1)
  - Drug ineffective [Unknown]
